FAERS Safety Report 5283405-9 (Version None)
Quarter: 2007Q1

REPORT INFORMATION
  Report Type: 
  Country: None (occurrence: None)
  Receive Date: 20070328
  Receipt Date: 20070328
  Transmission Date: 20070707
  Serious: No
  Sender: FDA-Public Use
  Company Number: None

PATIENT
  Age: 48 Year
  Sex: Male
  Weight: 113.3993 kg

DRUGS (3)
  1. LIPITOR [Suspect]
     Indication: BLOOD CHOLESTEROL INCREASED
     Dosage: 40MG DAILY
     Dates: start: 19950101, end: 20060101
  2. METHATRAXATE [Concomitant]
  3. PREDNISONE TAB [Concomitant]

REACTIONS (1)
  - MYOSITIS [None]
